FAERS Safety Report 22344506 (Version 4)
Quarter: 2023Q2

REPORT INFORMATION
  Report Type: Spontaneous
  Country: US (occurrence: US)
  Receive Date: 20230519
  Receipt Date: 20230614
  Transmission Date: 20230721
  Serious: No
  Sender: FDA-Public Use
  Company Number: US-002147023-NVSC2023US115189

PATIENT
  Sex: Female

DRUGS (1)
  1. MEKINIST [Suspect]
     Active Substance: TRAMETINIB DIMETHYL SULFOXIDE
     Indication: Optic nerve neoplasm
     Dosage: 1 MG, QD
     Route: 048
     Dates: start: 202303

REACTIONS (2)
  - Visual impairment [Unknown]
  - Alopecia [Unknown]
